FAERS Safety Report 8732408 (Version 3)
Quarter: 2018Q4

REPORT INFORMATION
  Report Type: Spontaneous
  Country: FR (occurrence: FR)
  Receive Date: 20120820
  Receipt Date: 20181001
  Transmission Date: 20190205
  Serious: Yes (Death)
  Sender: FDA-Public Use
  Company Number: FR-ROCHE-1095703

PATIENT
  Age: 89 Year
  Sex: Female
  Weight: 40 kg

DRUGS (16)
  1. TRAMADOL. [Concomitant]
     Active Substance: TRAMADOL
  2. ALPRAZOLAM. [Concomitant]
     Active Substance: ALPRAZOLAM
  3. LOVENOX [Suspect]
     Active Substance: ENOXAPARIN SODIUM
     Indication: PROPHYLAXIS
     Route: 058
     Dates: start: 20120618, end: 20120630
  4. TRANSIPEG (PEG3350\ELECTROLYTES) [Concomitant]
     Active Substance: POLYETHYLENE GLYCOL 3350\POTASSIUM CHLORIDE\SODIUM BICARBONATE\SODIUM CHLORIDE\SODIUM SULFATE ANHYDROUS
  5. DIFFU K [Concomitant]
     Active Substance: POTASSIUM CHLORIDE
  6. GAVISCON (ALUMINUM HYDROXIDE/MAGNESIUM TRISILICATE) [Concomitant]
  7. ROCEPHINE [Suspect]
     Active Substance: CEFTRIAXONE SODIUM
     Indication: LUNG INFECTION
     Route: 058
     Dates: start: 20120618, end: 20120629
  8. OXYNORM [Suspect]
     Active Substance: OXYCODONE HYDROCHLORIDE
     Indication: ABDOMINAL PAIN
     Route: 048
     Dates: start: 20120618, end: 20120629
  9. PARACETAMOL [Concomitant]
     Active Substance: ACETAMINOPHEN
  10. CYMBALTA [Suspect]
     Active Substance: DULOXETINE HYDROCHLORIDE
     Indication: ANXIETY
     Route: 048
     Dates: start: 20120626, end: 20120629
  11. KARDEGIC [Concomitant]
     Active Substance: ASPIRIN DL-LYSINE
  12. ROCEPHINE [Suspect]
     Active Substance: CEFTRIAXONE SODIUM
     Indication: CARDIAC FAILURE
  13. INEXIUM [Concomitant]
     Active Substance: ESOMEPRAZOLE
  14. CALCIDOSE (FRANCE) [Concomitant]
     Active Substance: CALCIUM CARBONATE
  15. FUROSEMIDE. [Concomitant]
     Active Substance: FUROSEMIDE
  16. SPECIAFOLDINE [Suspect]
     Active Substance: FOLIC ACID
     Indication: FOLATE DEFICIENCY
     Route: 048
     Dates: start: 20120619, end: 20120629

REACTIONS (3)
  - Hepatocellular injury [Fatal]
  - Ocular icterus [Fatal]
  - Pyrexia [Fatal]

NARRATIVE: CASE EVENT DATE: 20120630
